FAERS Safety Report 25139773 (Version 1)
Quarter: 2025Q1

REPORT INFORMATION
  Report Type: Spontaneous
  Country: JP (occurrence: JP)
  Receive Date: 20250331
  Receipt Date: 20250331
  Transmission Date: 20250408
  Serious: Yes (Other)
  Sender: MERCK SHARP & DOHME LLC
  Company Number: JP-009507513-2268829

PATIENT
  Age: 7 Decade
  Sex: Female

DRUGS (1)
  1. KEYTRUDA [Suspect]
     Active Substance: PEMBROLIZUMAB
     Indication: Microsatellite instability cancer
     Dosage: 200MG ONCE EVERY 3WEEKS (2 COURSES)
     Route: 041
     Dates: start: 202502

REACTIONS (1)
  - Proteinuria [Unknown]

NARRATIVE: CASE EVENT DATE: 20250301
